FAERS Safety Report 4554749-0 (Version None)
Quarter: 2005Q1

REPORT INFORMATION
  Report Type: 
  Country: None (occurrence: None)
  Receive Date: 20050118
  Receipt Date: 20050111
  Transmission Date: 20050727
  Serious: Yes (Hospitalization, Other)
  Sender: FDA-Public Use
  Company Number: CA-GLAXOSMITHKLINE-A0540598A

PATIENT
  Sex: Female

DRUGS (1)
  1. PARNATE [Suspect]
     Indication: DEPRESSION
     Route: 048

REACTIONS (5)
  - APPENDICITIS PERFORATED [None]
  - BLOOD CREATININE INCREASED [None]
  - MAJOR DEPRESSION [None]
  - ORTHOSTATIC HYPOTENSION [None]
  - PERITONITIS [None]
